APPROVED DRUG PRODUCT: CEFOTAN
Active Ingredient: CEFOTETAN DISODIUM
Strength: EQ 2GM BASE/VIAL **Federal Register determination that product was not discontinued or withdrawn for safety or effectiveness reasons**
Dosage Form/Route: INJECTABLE;INJECTION
Application: N050588 | Product #002 | TE Code: AP
Applicant: PAI HOLDINGS LLC DBA PHARMACEUTICAL ASSOCIATES INC
Approved: Dec 27, 1985 | RLD: Yes | RS: No | Type: RX